FAERS Safety Report 4710455-0 (Version None)
Quarter: 2005Q3

REPORT INFORMATION
  Report Type: 
  Country: None (occurrence: None)
  Receive Date: 20050707
  Receipt Date: 20050621
  Transmission Date: 20060218
  Serious: Yes (Congenital Anomaly)
  Sender: FDA-Public Use
  Company Number: FR_050606691

PATIENT

DRUGS (7)
  1. PROZAC [Suspect]
  2. ACETAMINOPHEN [Concomitant]
  3. DI-ANTALVIC [Concomitant]
  4. IMOVANE [Concomitant]
  5. LEXOMIL (BROMAZEPAM) [Concomitant]
  6. OMEPRAZOLE [Concomitant]
  7. TRAMADOL HCL [Concomitant]

REACTIONS (13)
  - ABORTION INDUCED [None]
  - ATRIOVENTRICULAR SEPTAL DEFECT [None]
  - CONGENITAL ANOMALY [None]
  - CONGENITAL HAND MALFORMATION [None]
  - CONGENITAL NEUROLOGICAL DISORDER [None]
  - CONGENITAL PULMONARY VALVE ATRESIA [None]
  - DRUG EXPOSURE DURING PREGNANCY [None]
  - FOETAL CYSTIC HYGROMA [None]
  - HYPERTELORISM OF ORBIT [None]
  - OESOPHAGEAL ATRESIA [None]
  - SINGLE UMBILICAL ARTERY [None]
  - THYMUS HYPOPLASIA [None]
  - TRANSPOSITION OF THE GREAT VESSELS [None]
